FAERS Safety Report 4848595-8 (Version None)
Quarter: 2005Q4

REPORT INFORMATION
  Report Type: 
  Country: None (occurrence: None)
  Receive Date: 20051206
  Receipt Date: 20051129
  Transmission Date: 20060501
  Serious: No
  Sender: FDA-Public Use
  Company Number: 2005-135211-NL

PATIENT
  Age: 75 Year
  Sex: Male

DRUGS (6)
  1. MIRTAZAPINE [Suspect]
     Dosage: 45 MG
     Route: 048
     Dates: start: 20050501
  2. VENLAFAXINE HCL [Suspect]
     Dosage: 75 MG
     Route: 048
     Dates: start: 20040101, end: 20050801
  3. BISOPROLOL [Suspect]
     Dosage: 10 MG/5 MG
     Route: 048
  4. FUROSEMIDE [Suspect]
     Route: 048
  5. METFORMIN HYDROCHLORIDE [Concomitant]
  6. INSULIN ASPART [Concomitant]

REACTIONS (3)
  - ATRIAL FIBRILLATION [None]
  - ORTHOSTATIC HYPOTENSION [None]
  - TREATMENT NONCOMPLIANCE [None]
